FAERS Safety Report 4785234-9 (Version None)
Quarter: 2005Q3

REPORT INFORMATION
  Report Type: 
  Country: None (occurrence: None)
  Receive Date: 20050929
  Receipt Date: 20050914
  Transmission Date: 20060218
  Serious: Yes (Other)
  Sender: FDA-Public Use
  Company Number: PHHO2005JP03792

PATIENT
  Age: 78 Year
  Sex: Male

DRUGS (11)
  1. VISUDYNE [Suspect]
     Indication: MACULAR DEGENERATION
     Dosage: 6 MG DAILY IV
     Route: 042
     Dates: start: 20041120, end: 20041120
  2. PANALDINE [Suspect]
     Indication: VASCULAR BYPASS GRAFT
  3. SANCOBA [Concomitant]
  4. CYANOCOBALAMIN [Concomitant]
  5. CARNACULIN [Concomitant]
  6. MUCOSTA [Concomitant]
  7. MYSLEE [Concomitant]
  8. TAKEPRON [Concomitant]
  9. MEVALOTIN [Concomitant]
  10. ADONA [Concomitant]
  11. MAGNESIUM OXIDE [Concomitant]

REACTIONS (8)
  - CHOROIDAL HAEMORRHAGE [None]
  - CONDITION AGGRAVATED [None]
  - EYE PAIN [None]
  - HAEMORRHAGE [None]
  - INTRAOCULAR PRESSURE INCREASED [None]
  - PROCEDURAL COMPLICATION [None]
  - VISUAL ACUITY REDUCED [None]
  - VITREOUS HAEMORRHAGE [None]
